FAERS Safety Report 20878170 (Version 1)
Quarter: 2022Q2

REPORT INFORMATION
  Report Type: Spontaneous
  Country: US (occurrence: None)
  Receive Date: 20220525
  Receipt Date: 20220525
  Transmission Date: 20220721
  Serious: Yes (Life-Threatening, Hospitalization, Congenital Anomaly)
  Sender: FDA-Public Use
  Company Number: None

PATIENT
  Age: 40 Year
  Weight: 99.79 kg

DRUGS (1)
  1. NEXPLANON [Suspect]
     Active Substance: ETONOGESTREL
     Dates: start: 20160516, end: 20190513

REACTIONS (12)
  - Complication of device removal [None]
  - Headache [None]
  - Pelvic inflammatory disease [None]
  - Dyspareunia [None]
  - Heavy menstrual bleeding [None]
  - Ruptured ectopic pregnancy [None]
  - Depression [None]
  - Weight increased [None]
  - Implant site hypoaesthesia [None]
  - Implant site nerve injury [None]
  - Grip strength decreased [None]
  - Implant site paraesthesia [None]

NARRATIVE: CASE EVENT DATE: 20220513
